FAERS Safety Report 4893236-7 (Version None)
Quarter: 2006Q1

REPORT INFORMATION
  Report Type: 
  Country: None (occurrence: None)
  Receive Date: 20060124
  Receipt Date: 20060110
  Transmission Date: 20060701
  Serious: Yes (Hospitalization)
  Sender: FDA-Public Use
  Company Number: 2005BI021962

PATIENT
  Age: 57 Year
  Sex: Female
  Weight: 56.6996 kg

DRUGS (7)
  1. AVONEX [Suspect]
     Indication: MULTIPLE SCLEROSIS
     Dosage: 30 UG; QW; IM
     Route: 030
     Dates: start: 20020901, end: 20030801
  2. AVONEX [Suspect]
     Indication: MULTIPLE SCLEROSIS
     Dosage: 30 UG; QW; IM
     Route: 030
     Dates: start: 20030801
  3. PREMARIN [Concomitant]
  4. SYNTHROID [Concomitant]
  5. PROVIGIL [Concomitant]
  6. MULTIPLE MEDICATIONS [Concomitant]
  7. LASIX [Concomitant]

REACTIONS (7)
  - BALANCE DISORDER [None]
  - DIFFICULTY IN WALKING [None]
  - FALL [None]
  - FUNGAL INFECTION [None]
  - MENTAL DISORDER [None]
  - TEARFULNESS [None]
  - TOOTHACHE [None]
